FAERS Safety Report 5709431-0 (Version None)
Quarter: 2008Q2

REPORT INFORMATION
  Report Type: 
  Country: None (occurrence: None)
  Receive Date: 20080418
  Receipt Date: 20080407
  Transmission Date: 20081010
  Serious: Yes (Hospitalization)
  Sender: FDA-Public Use
  Company Number: US-JNJFOC-20080402671

PATIENT
  Sex: Female
  Weight: 59.42 kg

DRUGS (16)
  1. DURAGESIC-100 [Suspect]
     Route: 062
  2. DURAGESIC-100 [Suspect]
     Route: 062
  3. DURAGESIC-100 [Suspect]
     Route: 062
  4. DURAGESIC-100 [Suspect]
     Route: 062
  5. DURAGESIC-100 [Suspect]
     Indication: PAIN
     Route: 062
  6. PERCOCET [Concomitant]
     Indication: BREAKTHROUGH PAIN
     Dosage: 10/325 MG
     Route: 048
  7. LORTAB [Concomitant]
     Indication: BREAKTHROUGH PAIN
     Route: 065
  8. VISTARIL [Concomitant]
     Indication: ANXIETY
     Dosage: CAN BE TAKEN AT BEDTIME IF NEEDED
     Route: 048
  9. SEROQUEL [Concomitant]
     Dosage: 300-600 MG AT NIGHT AS NEEDED
     Route: 048
  10. SEROQUEL [Concomitant]
     Indication: BIPOLAR DISORDER
     Route: 048
  11. LORAZEPAM [Concomitant]
     Indication: DRUG USE FOR UNKNOWN INDICATION
     Route: 065
  12. TIZANIDINE HCL [Concomitant]
     Indication: MUSCLE SPASMS
     Route: 048
  13. CLONAZEPAM [Concomitant]
     Indication: NERVOUSNESS
     Route: 048
  14. ELAVIL [Concomitant]
     Route: 065
  15. REGLAN [Concomitant]
     Route: 048
  16. CYMBALTA [Concomitant]
     Indication: DEPRESSION
     Route: 065

REACTIONS (9)
  - CHOLELITHIASIS [None]
  - DEPRESSION [None]
  - ENDOMETRIOSIS [None]
  - HAEMATEMESIS [None]
  - INAPPROPRIATE SCHEDULE OF DRUG ADMINISTRATION [None]
  - INCORRECT DRUG ADMINISTRATION DURATION [None]
  - PAIN [None]
  - ROSACEA [None]
  - UNEVALUABLE EVENT [None]
